FAERS Safety Report 6367662-3 (Version None)
Quarter: 2009Q3

REPORT INFORMATION
  Report Type: 
  Country: None (occurrence: None)
  Receive Date: 20090916
  Receipt Date: 20090910
  Transmission Date: 20100115
  Serious: Yes (Other)
  Sender: FDA-Public Use
  Company Number: CERZ-1000888

PATIENT
  Age: 80 Year
  Sex: Female
  Weight: 83.9 kg

DRUGS (11)
  1. CEREZYME [Suspect]
     Indication: GAUCHER'S DISEASE
     Dosage: 5000 U, Q2W, INTRAVENOUS
     Route: 042
     Dates: start: 19940101
  2. ZOMETA [Suspect]
     Indication: DRUG USE FOR UNKNOWN INDICATION
     Dosage: 4 MG, Q4W,
     Dates: start: 20020429, end: 20050404
  3. METOPROLOL (HYDROCHLOROTHIAZIDE) [Concomitant]
  4. PRILOSEC [Concomitant]
  5. IBUPROFEN [Concomitant]
  6. CALCIUM (CALCIUM) [Concomitant]
  7. VITAMIN D [Concomitant]
  8. OXYCODONE HCL [Concomitant]
  9. LISINOPRIL AND HYDROCHLOROTHIAZIDE [Concomitant]
  10. AMLODIPINE [Concomitant]
  11. PERIGUARD MOUTH RINSE [Concomitant]

REACTIONS (2)
  - DENTAL CARIES [None]
  - OSTEONECROSIS [None]
